FAERS Safety Report 4334670-3 (Version None)
Quarter: 2004Q1

REPORT INFORMATION
  Report Type: 
  Country: None (occurrence: None)
  Receive Date: 20040329
  Receipt Date: 20031204
  Transmission Date: 20041129
  Serious: No
  Sender: FDA-Public Use
  Company Number: 03P-163-0244465-00

PATIENT
  Sex: Female

DRUGS (1)
  1. HUMIRA [Suspect]
     Dosage: 40 MG, UNKNOWN, SUBCUTANEOUS
     Route: 058
     Dates: start: 20031125

REACTIONS (4)
  - CHEST PAIN [None]
  - INCREASED UPPER AIRWAY SECRETION [None]
  - NON-CARDIAC CHEST PAIN [None]
  - PHARYNGOLARYNGEAL PAIN [None]
